FAERS Safety Report 8070616-2 (Version None)
Quarter: 2012Q1

REPORT INFORMATION
  Report Type: 
  Country: None (occurrence: None)
  Receive Date: 20120125
  Receipt Date: 20120118
  Transmission Date: 20120608
  Serious: Yes (Life-Threatening, Hospitalization, Disabling, Other)
  Sender: FDA-Public Use
  Company Number: PHHY2012ES003929

PATIENT
  Age: 78 Year
  Sex: Female

DRUGS (8)
  1. RASILEZ [Suspect]
     Indication: HYPERTENSION
     Dosage: 150 MG, UNK
     Route: 048
     Dates: start: 20110915, end: 20111111
  2. COLCHICINE [Concomitant]
  3. CARVEDILOL [Concomitant]
  4. LANTUS [Concomitant]
  5. TENORMIN [Concomitant]
  6. LOSARTAN POTASSIUM [Concomitant]
  7. ATENOLOL [Concomitant]
  8. TORSEMIDE [Concomitant]

REACTIONS (11)
  - ANOSOGNOSIA [None]
  - CONTUSION [None]
  - ISCHAEMIC STROKE [None]
  - CEREBELLAR INFARCTION [None]
  - DYSARTHRIA [None]
  - FALL [None]
  - LIGAMENT SPRAIN [None]
  - ARRHYTHMIA [None]
  - HEADACHE [None]
  - HEMIPARESIS [None]
  - HEMIANOPIA [None]
